FAERS Safety Report 17954719 (Version 1)
Quarter: 2020Q2

REPORT INFORMATION
  Report Type: Spontaneous
  Country: JP (occurrence: JP)
  Receive Date: 20200629
  Receipt Date: 20200629
  Transmission Date: 20200714
  Serious: Yes (Hospitalization)
  Sender: FDA-Public Use
  Company Number: JP-ROCHE-2631953

PATIENT
  Age: 6 Year
  Sex: Female

DRUGS (7)
  1. RITUXIMAB. [Suspect]
     Active Substance: RITUXIMAB
     Indication: NEPHROTIC SYNDROME
     Route: 042
  2. PREDNISOLONE. [Concomitant]
     Active Substance: PREDNISOLONE
     Indication: NEPHROTIC SYNDROME
     Route: 065
  3. CYCLOSPORIN A [Concomitant]
     Active Substance: CYCLOSPORINE
     Indication: NEPHROTIC SYNDROME
     Route: 065
  4. METHYLPREDNISOLONE. [Concomitant]
     Active Substance: METHYLPREDNISOLONE
     Route: 065
  5. MIZORIBINE [Concomitant]
     Active Substance: MIZORIBINE
     Indication: NEPHROTIC SYNDROME
     Route: 065
  6. PREDNISOLONE. [Concomitant]
     Active Substance: PREDNISOLONE
     Route: 065
  7. CYCLOSPORIN A [Concomitant]
     Active Substance: CYCLOSPORINE
     Route: 065

REACTIONS (1)
  - Kawasaki^s disease [Recovered/Resolved]
